FAERS Safety Report 6318187-2 (Version None)
Quarter: 2009Q3

REPORT INFORMATION
  Report Type: 
  Country: None (occurrence: None)
  Receive Date: 20090821
  Receipt Date: 20090817
  Transmission Date: 20100115
  Serious: Yes (Other)
  Sender: FDA-Public Use
  Company Number: B0577363A

PATIENT
  Sex: Female

DRUGS (6)
  1. TWINRIX [Suspect]
     Indication: PROPHYLAXIS
     Dosage: 1INJ SINGLE DOSE
     Route: 065
     Dates: start: 20090512, end: 20090512
  2. TYPHERIX [Suspect]
     Indication: PROPHYLAXIS
     Dosage: 1INJ SINGLE DOSE
     Route: 065
     Dates: start: 20090512, end: 20090512
  3. YELLOW FEVER VACCINE [Suspect]
     Indication: PROPHYLAXIS
     Dosage: 1INJ SINGLE DOSE
     Route: 065
     Dates: start: 20090501, end: 20090501
  4. BECLOMETHASONE DIPROPIONATE [Suspect]
     Indication: DRUG USE FOR UNKNOWN INDICATION
     Route: 065
  5. LORATADINE [Suspect]
     Indication: DRUG USE FOR UNKNOWN INDICATION
     Route: 065
  6. TWINRIX [Concomitant]
     Dosage: 1INJ SINGLE DOSE
     Route: 065
     Dates: start: 20090519, end: 20090519

REACTIONS (2)
  - ABORTION [None]
  - DRUG EXPOSURE DURING PREGNANCY [None]
